FAERS Safety Report 13227480 (Version 2)
Quarter: 2017Q1

REPORT INFORMATION
  Report Type: Spontaneous
  Country: DK (occurrence: DK)
  Receive Date: 20170213
  Receipt Date: 20170227
  Transmission Date: 20170428
  Serious: Yes (Other)
  Sender: FDA-Public Use
  Company Number: DK-ELI_LILLY_AND_COMPANY-DK201605002730

PATIENT
  Sex: Female

DRUGS (8)
  1. ZYPREXA [Suspect]
     Active Substance: OLANZAPINE
     Indication: PSYCHOTIC DISORDER
     Dosage: 5 MG, UNKNOWN
     Route: 065
     Dates: start: 20040427, end: 20040501
  2. ZYPREXA [Suspect]
     Active Substance: OLANZAPINE
     Dosage: UNK, UNKNOWN
     Route: 065
     Dates: start: 200703
  3. IMOZOP [Concomitant]
     Active Substance: ZOPICLONE
     Dosage: 7.5 MG, UNKNOWN
     Route: 065
  4. ZYPREXA [Suspect]
     Active Substance: OLANZAPINE
     Dosage: 7.5 MG, QOD
     Route: 065
     Dates: start: 20050808, end: 20050912
  5. ZYPREXA [Suspect]
     Active Substance: OLANZAPINE
     Dosage: UNK
     Dates: start: 20041027
  6. ZYPREXA [Suspect]
     Active Substance: OLANZAPINE
     Dosage: 15 MG, UNKNOWN
     Route: 065
  7. ZYPREXA [Suspect]
     Active Substance: OLANZAPINE
     Dosage: UNK, UNKNOWN
     Route: 065
     Dates: start: 20050321
  8. RISPERDAL [Concomitant]
     Active Substance: RISPERIDONE
     Indication: PSYCHOTIC DISORDER
     Dosage: UNK
     Dates: start: 20051029

REACTIONS (11)
  - Pulmonary oedema [Unknown]
  - Fatigue [Unknown]
  - Suicidal ideation [Unknown]
  - Weight increased [Unknown]
  - Visual acuity reduced [Unknown]
  - Sedation [Unknown]
  - Memory impairment [Unknown]
  - Menstruation irregular [Unknown]
  - Feeling abnormal [Unknown]
  - Hypertension [Unknown]
  - Headache [Unknown]

NARRATIVE: CASE EVENT DATE: 2005
